FAERS Safety Report 8956217 (Version 5)
Quarter: 2014Q1

REPORT INFORMATION
  Report Type: Spontaneous
  Country: TR (occurrence: TR)
  Receive Date: 20121210
  Receipt Date: 20140226
  Transmission Date: 20141002
  Serious: Yes (Other)
  Sender: FDA-Public Use
  Company Number: TR-JNJFOC-20121005401

PATIENT
  Age: 32 Year
  Sex: Female
  Weight: 70 kg

DRUGS (16)
  1. REMICADE [Suspect]
     Indication: ANKYLOSING SPONDYLITIS
     Route: 042
     Dates: start: 20120424
  2. REMICADE [Suspect]
     Indication: ANKYLOSING SPONDYLITIS
     Route: 042
     Dates: start: 20120327
  3. REMICADE [Suspect]
     Indication: ANKYLOSING SPONDYLITIS
     Dosage: 1ST INFUSION DOSE
     Route: 042
     Dates: start: 20120313
  4. REMICADE [Suspect]
     Indication: ANKYLOSING SPONDYLITIS
     Route: 042
     Dates: start: 20130903
  5. REMICADE [Suspect]
     Indication: ANKYLOSING SPONDYLITIS
     Dosage: 9TH INFUSION DOSE
     Route: 042
     Dates: start: 20130327
  6. REMICADE [Suspect]
     Indication: ANKYLOSING SPONDYLITIS
     Dosage: 8TH INFUSION DOSE
     Route: 042
     Dates: start: 20130130
  7. REMICADE [Suspect]
     Indication: ANKYLOSING SPONDYLITIS
     Dosage: 7TH INFUSION DOSE
     Route: 042
     Dates: start: 20121205
  8. REMICADE [Suspect]
     Indication: ANKYLOSING SPONDYLITIS
     Dosage: 6TH INFUSION DOSE
     Route: 042
     Dates: start: 20121010
  9. REMICADE [Suspect]
     Indication: ANKYLOSING SPONDYLITIS
     Route: 042
     Dates: start: 20120620
  10. REMICADE [Suspect]
     Indication: ANKYLOSING SPONDYLITIS
     Route: 042
     Dates: start: 20120815
  11. REMICADE [Suspect]
     Indication: ANKYLOSING SPONDYLITIS
     Route: 042
  12. REMICADE [Suspect]
     Indication: ANKYLOSING SPONDYLITIS
     Route: 042
     Dates: start: 20130717
  13. CORTISONE [Concomitant]
     Indication: PREMEDICATION
     Route: 042
     Dates: start: 201212
  14. CORTISONE [Concomitant]
     Indication: PREMEDICATION
     Route: 042
     Dates: start: 20130717
  15. CORTISONE [Concomitant]
     Indication: PREMEDICATION
     Route: 042
     Dates: start: 20130903
  16. PREDNOL [Concomitant]
     Indication: PREMEDICATION
     Route: 065

REACTIONS (10)
  - Psoriasis [Not Recovered/Not Resolved]
  - Urticaria [Not Recovered/Not Resolved]
  - Pain [Not Recovered/Not Resolved]
  - Behcet^s syndrome [Not Recovered/Not Resolved]
  - Weight increased [Not Recovered/Not Resolved]
  - Vaginal ulceration [Not Recovered/Not Resolved]
  - Oropharyngeal pain [Not Recovered/Not Resolved]
  - C-reactive protein increased [Unknown]
  - Red blood cell sedimentation rate increased [Unknown]
  - Pain [Recovered/Resolved]
